FAERS Safety Report 20442343 (Version 2)
Quarter: 2022Q1

REPORT INFORMATION
  Report Type: Spontaneous
  Country: NO (occurrence: NO)
  Receive Date: 20220208
  Receipt Date: 20220211
  Transmission Date: 20220423
  Serious: Yes (Disabling)
  Sender: FDA-Public Use
  Company Number: NO-SA-SAC20220202000574

PATIENT
  Age: 60 Year
  Sex: Female

DRUGS (4)
  1. LEMTRADA [Suspect]
     Active Substance: ALEMTUZUMAB
     Indication: Multiple sclerosis
     Dosage: UNK
     Dates: start: 201901, end: 20190111
  2. LEMTRADA [Suspect]
     Active Substance: ALEMTUZUMAB
     Dosage: UNK
     Dates: start: 20180108
  3. LIPITOR [Concomitant]
     Active Substance: ATORVASTATIN CALCIUM
  4. ATACAND [Concomitant]
     Active Substance: CANDESARTAN CILEXETIL
     Dosage: UNK

REACTIONS (9)
  - Eye swelling [Unknown]
  - Diplopia [Unknown]
  - Balance disorder [Unknown]
  - Swelling face [Unknown]
  - Dizziness [Unknown]
  - Metabolic disorder [Unknown]
  - Hyperhidrosis [Unknown]
  - Palpitations [Unknown]
  - Chills [Unknown]

NARRATIVE: CASE EVENT DATE: 20200501
